FAERS Safety Report 5591603-X (Version None)
Quarter: 2007Q4

REPORT INFORMATION
  Report Type: 
  Country: None (occurrence: None)
  Receive Date: 20071212
  Receipt Date: 20070615
  Transmission Date: 20080405
  Serious: Yes (Other)
  Sender: FDA-Public Use
  Company Number: USA-2007-0027897

PATIENT
  Sex: Male

DRUGS (1)
  1. OXYCONTIN [Suspect]
     Indication: SPINAL FUSION SURGERY
     Dosage: 600 MG, DAILY
     Dates: start: 20010101

REACTIONS (4)
  - DRUG EFFECT DECREASED [None]
  - DRUG INEFFECTIVE [None]
  - DRUG WITHDRAWAL CONVULSIONS [None]
  - DRUG WITHDRAWAL SYNDROME [None]
